FAERS Safety Report 21223432 (Version 2)
Quarter: 2022Q3

REPORT INFORMATION
  Report Type: Spontaneous
  Country: US (occurrence: US)
  Receive Date: 20220817
  Receipt Date: 20220907
  Transmission Date: 20221027
  Serious: No
  Sender: FDA-Public Use
  Company Number: US-BRISTOL-MYERS SQUIBB COMPANY-2022-091367

PATIENT
  Age: 73 Year
  Sex: Female
  Weight: 128.37 kg

DRUGS (2)
  1. REVLIMID [Suspect]
     Active Substance: LENALIDOMIDE
     Indication: Plasma cell myeloma
     Route: 048
     Dates: start: 20201119
  2. REVLIMID [Suspect]
     Active Substance: LENALIDOMIDE
     Dosage: 10 MG, DAYS 1-21, EVERY 28 DAYS
     Route: 065
     Dates: start: 20210831

REACTIONS (2)
  - Blood magnesium decreased [Unknown]
  - Blood calcium abnormal [Not Recovered/Not Resolved]
